FAERS Safety Report 6112123-X (Version None)
Quarter: 2009Q1

REPORT INFORMATION
  Report Type: 
  Country: None (occurrence: None)
  Receive Date: 20090310
  Receipt Date: 20090223
  Transmission Date: 20090719
  Serious: Yes (Hospitalization)
  Sender: FDA-Public Use
  Company Number: 231268K09USA

PATIENT
  Age: 18 Year
  Sex: Female

DRUGS (7)
  1. REBIF [Suspect]
     Indication: MULTIPLE SCLEROSIS
     Dosage: 44 MCG, 3 IN 1 WEEKS, SUBCUTANEOUS
     Route: 058
     Dates: start: 20081124
  2. IMMUNE GLOBULIN (HUMAN) [Concomitant]
  3. STEROIDS       (CORTICOSTEROIDS) [Concomitant]
  4. PRENATAL VITAMINS     (PRENATAL VITAMINS) [Concomitant]
  5. TYLENOL    (COTYLENOL) [Concomitant]
  6. VITAMIN B12 [Concomitant]
  7. ELAVIL [Concomitant]

REACTIONS (8)
  - DIPLOPIA [None]
  - INFLUENZA [None]
  - INJECTION SITE IRRITATION [None]
  - INTRAOCULAR PRESSURE INCREASED [None]
  - MASTICATION DISORDER [None]
  - PARAESTHESIA [None]
  - READING DISORDER [None]
  - SINUSITIS [None]
